FAERS Safety Report 13115249 (Version 5)
Quarter: 2018Q2

REPORT INFORMATION
  Report Type: Report from Study
  Country: US (occurrence: US)
  Receive Date: 20170113
  Receipt Date: 20180518
  Transmission Date: 20180711
  Serious: Yes (Hospitalization, Other)
  Sender: FDA-Public Use
  Company Number: US-ACTELION-A-US2017-148151

PATIENT
  Age: 67 Year
  Sex: Female

DRUGS (8)
  1. ALBUTEROL. [Concomitant]
     Active Substance: ALBUTEROL
  2. SILDENAFIL. [Concomitant]
     Active Substance: SILDENAFIL
  3. REVATIO [Concomitant]
     Active Substance: SILDENAFIL CITRATE
  4. REMODULIN [Concomitant]
     Active Substance: TREPROSTINIL
  5. ALLOPURINOL. [Concomitant]
     Active Substance: ALLOPURINOL
  6. COUMADIN [Concomitant]
     Active Substance: WARFARIN SODIUM
  7. TRACLEER [Suspect]
     Active Substance: BOSENTAN
     Indication: PULMONARY ARTERIAL HYPERTENSION
     Dosage: 125 MG, BID
     Route: 048
     Dates: start: 20120712
  8. DILTIAZEM. [Concomitant]
     Active Substance: DILTIAZEM

REACTIONS (4)
  - Dialysis [Not Recovered/Not Resolved]
  - Loss of consciousness [Recovering/Resolving]
  - Rectal haemorrhage [Recovered/Resolved]
  - Dehydration [Recovering/Resolving]

NARRATIVE: CASE EVENT DATE: 20170328
